FAERS Safety Report 4974379-6 (Version None)
Quarter: 2006Q2

REPORT INFORMATION
  Report Type: 
  Country: None (occurrence: None)
  Receive Date: 20060410
  Receipt Date: 20060328
  Transmission Date: 20061013
  Serious: Yes (Hospitalization, Other)
  Sender: FDA-Public Use
  Company Number: 2006042973

PATIENT
  Age: 61 Year
  Sex: Male

DRUGS (10)
  1. SUTENT [Suspect]
     Indication: RENAL CELL CARCINOMA STAGE UNSPECIFIED
     Dates: start: 20060101
  2. OXYCONTIN [Concomitant]
  3. PREVACID [Concomitant]
  4. PREDNISONE [Concomitant]
  5. LASIX [Concomitant]
  6. KLONOPIN [Concomitant]
  7. ALDACTONE [Concomitant]
  8. TESSALON [Concomitant]
  9. PERCOCET [Concomitant]
  10. PRENATAL VITAMINS (ASCORBIC ACID, BIOTIN, MINERALS NOS, NICOTINIC ACID [Concomitant]

REACTIONS (3)
  - PNEUMONIA [None]
  - PULMONARY EMBOLISM [None]
  - RENAL FAILURE [None]
